FAERS Safety Report 16730878 (Version 1)
Quarter: 2019Q3

REPORT INFORMATION
  Report Type: Report from Study
  Country: HN (occurrence: HN)
  Receive Date: 20190822
  Receipt Date: 20190822
  Transmission Date: 20191005
  Serious: Yes (Other)
  Sender: FDA-Public Use
  Company Number: PHHY2019HN193198

PATIENT
  Age: 75 Year
  Sex: Male

DRUGS (1)
  1. CO-DIOVAN [Suspect]
     Active Substance: HYDROCHLOROTHIAZIDE\VALSARTAN
     Indication: PRODUCT USED FOR UNKNOWN INDICATION
     Dosage: (HYDROCHLOROTHIAZIDE 25 MG, VALSARTAN 320 MG) (10 YEARS AGO)
     Route: 065

REACTIONS (1)
  - Diabetes mellitus [Unknown]
